FAERS Safety Report 9257131 (Version 1)
Quarter: 2013Q2

REPORT INFORMATION
  Report Type: Spontaneous
  Country: US (occurrence: None)
  Receive Date: 20130424
  Receipt Date: 20130424
  Transmission Date: 20140414
  Serious: No
  Sender: FDA-Public Use
  Company Number: None

PATIENT
  Age: 36 Year
  Sex: Male
  Weight: 89.1 kg

DRUGS (2)
  1. REGADENOSON [Suspect]
     Indication: ANGIOGRAM
     Dates: start: 20130214, end: 20130214
  2. REGADENOSON [Suspect]
     Indication: CARDIAC STRESS TEST
     Dates: start: 20130214, end: 20130214

REACTIONS (5)
  - Convulsion [None]
  - Post procedural complication [None]
  - Unresponsive to stimuli [None]
  - Hypotension [None]
  - Injection site extravasation [None]
